FAERS Safety Report 7953666-3 (Version None)
Quarter: 2011Q4

REPORT INFORMATION
  Report Type: 
  Country: None (occurrence: None)
  Receive Date: 20111202
  Receipt Date: 20111124
  Transmission Date: 20120403
  Serious: Yes (Hospitalization)
  Sender: FDA-Public Use
  Company Number: DE-B.I. PHARMACEUTICALS,INC./RIDGEFIELD-2011-DE-06551DE

PATIENT
  Sex: Female

DRUGS (1)
  1. DABIGATRAN [Suspect]
     Dosage: 300 MG
     Route: 048

REACTIONS (1)
  - LIVER FUNCTION TEST ABNORMAL [None]
